FAERS Safety Report 4677480-X (Version None)
Quarter: 2005Q2

REPORT INFORMATION
  Report Type: 
  Country: None (occurrence: None)
  Receive Date: 20050531
  Receipt Date: 20050523
  Transmission Date: 20051028
  Serious: Yes (Disabling)
  Sender: FDA-Public Use
  Company Number: PHEH2005US05839

PATIENT
  Age: 56 Year
  Sex: Female

DRUGS (2)
  1. ZOMETA [Suspect]
     Indication: METASTASES TO BONE
     Dosage: 90 MG ABOUT ONCE A MONTH
     Dates: start: 20000201
  2. ZOMETA [Suspect]
     Indication: METASTASES TO BONE
     Dosage: 4 MG ABOUT ONCE A MONTH
     Dates: end: 20040301

REACTIONS (4)
  - ASEPTIC NECROSIS BONE [None]
  - FALL [None]
  - INJURY [None]
  - OSTEONECROSIS [None]
